FAERS Safety Report 8309234-7 (Version None)
Quarter: 2012Q2

REPORT INFORMATION
  Report Type: 
  Country: None (occurrence: None)
  Receive Date: 20120424
  Receipt Date: 20120418
  Transmission Date: 20120825
  Serious: Yes (Hospitalization)
  Sender: FDA-Public Use
  Company Number: GB-MERCK-1204GBR00063

PATIENT
  Age: 76 Year
  Sex: Male

DRUGS (3)
  1. JANUVIA [Suspect]
     Indication: DIABETES MELLITUS
     Route: 048
     Dates: start: 20120328
  2. RAMIPRIL [Concomitant]
     Route: 048
  3. ZOCOR [Concomitant]
     Route: 048
     Dates: end: 20120402

REACTIONS (1)
  - CEREBRAL HAEMORRHAGE [None]
